FAERS Safety Report 24230939 (Version 2)
Quarter: 2024Q3

REPORT INFORMATION
  Report Type: Spontaneous
  Country: US (occurrence: US)
  Receive Date: 20240821
  Receipt Date: 20240821
  Transmission Date: 20241017
  Serious: Yes (Other)
  Sender: AMGEN
  Company Number: US-AMGEN-USASP2024164812

PATIENT
  Age: 77 Year
  Sex: Female

DRUGS (2)
  1. IMDELLTRA [Suspect]
     Active Substance: TARLATAMAB-DLLE
     Indication: Small cell lung cancer extensive stage
     Dosage: UNK, DAY 1
     Route: 065
     Dates: start: 20240807, end: 20240807
  2. IMDELLTRA [Suspect]
     Active Substance: TARLATAMAB-DLLE
     Dosage: 10 MILLIGRAM, DAY 8
     Route: 065
     Dates: start: 20240814

REACTIONS (1)
  - Immune effector cell-associated neurotoxicity syndrome [Recovered/Resolved]

NARRATIVE: CASE EVENT DATE: 20240801
